FAERS Safety Report 8058621-3 (Version None)
Quarter: 2012Q1

REPORT INFORMATION
  Report Type: 
  Country: None (occurrence: None)
  Receive Date: 20120119
  Receipt Date: 20120119
  Transmission Date: 20120608
  Serious: Yes (Hospitalization)
  Sender: FDA-Public Use
  Company Number: None

PATIENT
  Age: 49 Year
  Sex: Male
  Weight: 145.8 kg

DRUGS (9)
  1. M.V.I. [Concomitant]
  2. ASPIRIN [Concomitant]
  3. IMITREX [Suspect]
     Indication: MIGRAINE
     Dosage: 50MG ONCE PO RECENT
     Route: 048
  4. LOSARTAN POTASSIUM [Concomitant]
  5. FISH OIL [Concomitant]
  6. GLIMEPIRIDE [Concomitant]
  7. POTASSIUM CHLORIDE [Concomitant]
  8. RANITIDINE [Concomitant]
  9. METFORMIN [Concomitant]

REACTIONS (3)
  - TACHYCARDIA [None]
  - MIGRAINE [None]
  - HYPERTENSION [None]
